FAERS Safety Report 7413268-4 (Version None)
Quarter: 2011Q2

REPORT INFORMATION
  Report Type: 
  Country: None (occurrence: None)
  Receive Date: 20110413
  Receipt Date: 20110407
  Transmission Date: 20111010
  Serious: Yes (Other)
  Sender: FDA-Public Use
  Company Number: GB-PFIZER INC-2011059694

PATIENT
  Age: 44 Year
  Sex: Male
  Weight: 75 kg

DRUGS (1)
  1. METRONIDAZOLE [Suspect]
     Dosage: 400 MG, 3X/DAY
     Route: 048

REACTIONS (4)
  - PARAESTHESIA [None]
  - HEADACHE [None]
  - PYREXIA [None]
  - DISORIENTATION [None]
